FAERS Safety Report 9633911 (Version 1)
Quarter: 2013Q4

REPORT INFORMATION
  Report Type: Spontaneous
  Country: TW (occurrence: TW)
  Receive Date: 20131021
  Receipt Date: 20131021
  Transmission Date: 20140711
  Serious: Yes (Other)
  Sender: FDA-Public Use
  Company Number: TW-JNJFOC-20131004676

PATIENT
  Sex: 0

DRUGS (76)
  1. IBUPROFEN [Suspect]
     Indication: HEADACHE
     Route: 065
  2. IBUPROFEN [Suspect]
     Indication: HEADACHE
     Route: 065
  3. IBUPROFEN [Suspect]
     Indication: RESPIRATORY DISORDER
     Route: 065
  4. IBUPROFEN [Suspect]
     Indication: BONE DISORDER
     Route: 065
  5. DICLOFENAC [Suspect]
     Indication: HEADACHE
     Route: 065
  6. DICLOFENAC [Suspect]
     Indication: HEADACHE
     Route: 065
  7. DICLOFENAC [Suspect]
     Indication: RESPIRATORY DISORDER
     Route: 065
  8. DICLOFENAC [Suspect]
     Indication: BONE DISORDER
     Route: 065
  9. MEFENAMIC ACID [Suspect]
     Indication: HEADACHE
     Route: 065
  10. MEFENAMIC ACID [Suspect]
     Indication: HEADACHE
     Route: 065
  11. MEFENAMIC ACID [Suspect]
     Indication: RESPIRATORY DISORDER
     Route: 065
  12. MEFENAMIC ACID [Suspect]
     Indication: BONE DISORDER
     Route: 065
  13. KETOROLAC [Suspect]
     Indication: HEADACHE
     Route: 065
  14. KETOROLAC [Suspect]
     Indication: HEADACHE
     Route: 065
  15. KETOROLAC [Suspect]
     Indication: RESPIRATORY DISORDER
     Route: 065
  16. KETOROLAC [Suspect]
     Indication: BONE DISORDER
     Route: 065
  17. KETOPROFEN [Suspect]
     Indication: HEADACHE
     Route: 065
  18. KETOPROFEN [Suspect]
     Indication: HEADACHE
     Route: 065
  19. KETOPROFEN [Suspect]
     Indication: RESPIRATORY DISORDER
     Route: 065
  20. KETOPROFEN [Suspect]
     Indication: BONE DISORDER
     Route: 065
  21. ETODOLAC [Suspect]
     Indication: HEADACHE
     Route: 065
  22. ETODOLAC [Suspect]
     Indication: HEADACHE
     Route: 065
  23. ETODOLAC [Suspect]
     Indication: RESPIRATORY DISORDER
     Route: 065
  24. ETODOLAC [Suspect]
     Indication: BONE DISORDER
     Route: 065
  25. INDOMETHACIN [Suspect]
     Indication: HEADACHE
     Route: 065
  26. INDOMETHACIN [Suspect]
     Indication: HEADACHE
     Route: 065
  27. INDOMETHACIN [Suspect]
     Indication: RESPIRATORY DISORDER
     Route: 065
  28. INDOMETHACIN [Suspect]
     Indication: BONE DISORDER
     Route: 065
  29. SULINDAC [Suspect]
     Indication: HEADACHE
     Route: 065
  30. SULINDAC [Suspect]
     Indication: HEADACHE
     Route: 065
  31. SULINDAC [Suspect]
     Indication: RESPIRATORY DISORDER
     Route: 065
  32. SULINDAC [Suspect]
     Indication: BONE DISORDER
     Route: 065
  33. PIROXICAM [Suspect]
     Indication: HEADACHE
     Route: 065
  34. PIROXICAM [Suspect]
     Indication: HEADACHE
     Route: 065
  35. PIROXICAM [Suspect]
     Indication: RESPIRATORY DISORDER
     Route: 065
  36. PIROXICAM [Suspect]
     Indication: BONE DISORDER
     Route: 065
  37. MELOXICAM [Suspect]
     Indication: HEADACHE
     Route: 065
  38. MELOXICAM [Suspect]
     Indication: HEADACHE
     Route: 065
  39. MELOXICAM [Suspect]
     Indication: RESPIRATORY DISORDER
     Route: 065
  40. MELOXICAM [Suspect]
     Indication: BONE DISORDER
     Route: 065
  41. NAPROXEN [Suspect]
     Indication: HEADACHE
     Route: 065
  42. NAPROXEN [Suspect]
     Indication: HEADACHE
     Route: 065
  43. NAPROXEN [Suspect]
     Indication: RESPIRATORY DISORDER
     Route: 065
  44. NAPROXEN [Suspect]
     Indication: BONE DISORDER
     Route: 065
  45. FENOPROFEN [Suspect]
     Indication: HEADACHE
     Route: 065
  46. FENOPROFEN [Suspect]
     Indication: HEADACHE
     Route: 065
  47. FENOPROFEN [Suspect]
     Indication: RESPIRATORY DISORDER
     Route: 065
  48. FENOPROFEN [Suspect]
     Indication: BONE DISORDER
     Route: 065
  49. FLURBIPROFEN [Suspect]
     Indication: HEADACHE
     Route: 065
  50. FLURBIPROFEN [Suspect]
     Indication: HEADACHE
     Route: 065
  51. FLURBIPROFEN [Suspect]
     Indication: RESPIRATORY DISORDER
     Route: 065
  52. FLURBIPROFEN [Suspect]
     Indication: BONE DISORDER
     Route: 065
  53. TENOXICAM [Suspect]
     Indication: HEADACHE
     Route: 065
  54. TENOXICAM [Suspect]
     Indication: HEADACHE
     Route: 065
  55. TENOXICAM [Suspect]
     Indication: RESPIRATORY DISORDER
     Route: 065
  56. TENOXICAM [Suspect]
     Indication: BONE DISORDER
     Route: 065
  57. MECLOFENAMIC ACID [Suspect]
     Indication: HEADACHE
     Route: 065
  58. MECLOFENAMIC ACID [Suspect]
     Indication: HEADACHE
     Route: 065
  59. MECLOFENAMIC ACID [Suspect]
     Indication: RESPIRATORY DISORDER
     Route: 065
  60. MECLOFENAMIC ACID [Suspect]
     Indication: BONE DISORDER
     Route: 065
  61. FLUFENAMIC ACID [Suspect]
     Indication: HEADACHE
     Route: 065
  62. FLUFENAMIC ACID [Suspect]
     Indication: HEADACHE
     Route: 065
  63. FLUFENAMIC ACID [Suspect]
     Indication: RESPIRATORY DISORDER
     Route: 065
  64. FLUFENAMIC ACID [Suspect]
     Indication: BONE DISORDER
     Route: 065
  65. TOLFENAMIC ACID [Suspect]
     Indication: HEADACHE
     Route: 065
  66. TOLFENAMIC ACID [Suspect]
     Indication: HEADACHE
     Route: 065
  67. TOLFENAMIC ACID [Suspect]
     Indication: RESPIRATORY DISORDER
     Route: 065
  68. TOLFENAMIC ACID [Suspect]
     Indication: BONE DISORDER
     Route: 065
  69. CELECOXIB [Suspect]
     Indication: HEADACHE
     Route: 065
  70. CELECOXIB [Suspect]
     Indication: HEADACHE
     Route: 065
  71. CELECOXIB [Suspect]
     Indication: RESPIRATORY DISORDER
     Route: 065
  72. CELECOXIB [Suspect]
     Indication: BONE DISORDER
     Route: 065
  73. ROFECOXIB [Suspect]
     Indication: HEADACHE
     Route: 065
  74. ROFECOXIB [Suspect]
     Indication: HEADACHE
     Route: 065
  75. ROFECOXIB [Suspect]
     Indication: RESPIRATORY DISORDER
     Route: 065
  76. ROFECOXIB [Suspect]
     Indication: BONE DISORDER
     Route: 065

REACTIONS (1)
  - Atrial fibrillation [Unknown]
